FAERS Safety Report 4848463-1 (Version None)
Quarter: 2005Q4

REPORT INFORMATION
  Report Type: 
  Country: None (occurrence: None)
  Receive Date: 20051208
  Receipt Date: 20050912
  Transmission Date: 20060501
  Serious: Yes (Hospitalization, Disabling)
  Sender: FDA-Public Use
  Company Number: GB-MERCK-0509GBR00102

PATIENT
  Age: 60 Year
  Sex: Female
  Weight: 86 kg

DRUGS (6)
  1. VIOXX [Suspect]
     Indication: BACK PAIN
     Route: 048
     Dates: start: 20011205, end: 20041001
  2. CODEINE PHOSPHATE [Concomitant]
     Route: 065
  3. ACETAMINOPHEN [Concomitant]
     Route: 065
  4. DIAZEPAM [Concomitant]
     Indication: PANIC DISORDER
     Route: 065
  5. DIAZEPAM [Concomitant]
     Indication: ANXIETY
     Route: 065
  6. BISOPROLOL [Concomitant]
     Route: 065

REACTIONS (5)
  - BLOOD CHOLESTEROL INCREASED [None]
  - BLOOD PRESSURE INCREASED [None]
  - CEREBROVASCULAR ACCIDENT [None]
  - FALL [None]
  - LOSS OF CONSCIOUSNESS [None]
